FAERS Safety Report 4509352-5 (Version None)
Quarter: 2004Q4

REPORT INFORMATION
  Report Type: 
  Country: None (occurrence: None)
  Receive Date: 20041025
  Receipt Date: 20040806
  Transmission Date: 20050328
  Serious: Yes (Other)
  Sender: FDA-Public Use
  Company Number: US-JNJFOC-20040802338

PATIENT
  Age: 47 Year
  Sex: Male

DRUGS (5)
  1. INFLIXIMAB (INFLIXIMAB, RECOMBINANT) LYOPHILIZED POWDER [Suspect]
     Indication: RHEUMATOID ARTHRITIS
     Dosage: INTRAVENOUS
     Route: 042
     Dates: start: 20010611
  2. METHOTREXATE [Concomitant]
  3. FOLIC ACID [Concomitant]
  4. MULTIVITAMIN (MULTIVITAMINS [Concomitant]
  5. ALEVE [Concomitant]

REACTIONS (1)
  - INFUSION RELATED REACTION [None]
